FAERS Safety Report 5813619-8 (Version None)
Quarter: 2008Q3

REPORT INFORMATION
  Report Type: 
  Country: None (occurrence: None)
  Receive Date: 20080717
  Receipt Date: 20080709
  Transmission Date: 20090109
  Serious: Yes (Other)
  Sender: FDA-Public Use
  Company Number: BR-JNJFOC-20080702794

PATIENT
  Age: 5 Year
  Sex: Male
  Weight: 20 kg

DRUGS (1)
  1. HALDOL [Suspect]
     Indication: ACCIDENTAL EXPOSURE
     Route: 048

REACTIONS (5)
  - ACCIDENTAL DRUG INTAKE BY CHILD [None]
  - CONFUSIONAL STATE [None]
  - CONVULSION [None]
  - SALIVARY HYPERSECRETION [None]
  - SOMNOLENCE [None]
